FAERS Safety Report 11155733 (Version 1)
Quarter: 2015Q2

REPORT INFORMATION
  Report Type: Spontaneous
  Country: DE (occurrence: DE)
  Receive Date: 20150602
  Receipt Date: 20150602
  Transmission Date: 20150821
  Serious: Yes (Hospitalization, Other)
  Sender: FDA-Public Use
  Company Number: DE-MYLANLABS-2015M1017300

PATIENT

DRUGS (3)
  1. PANTOPRAZOL DURA 40 MG MAGENSAFTRESISTENTE TABLETTEN [Suspect]
     Active Substance: PANTOPRAZOLE SODIUM
     Indication: BURN OESOPHAGEAL
     Dosage: 40 MG, QD
     Dates: start: 2013
  2. VITAMIN D3 [Suspect]
     Active Substance: CHOLECALCIFEROL
     Dosage: 1000 MG/DAY
     Dates: start: 201410
  3. VITAMIN D3 [Suspect]
     Active Substance: CHOLECALCIFEROL
     Indication: PRODUCT USED FOR UNKNOWN INDICATION
     Dosage: UNK
     Route: 048
     Dates: start: 1997, end: 201410

REACTIONS (4)
  - Vitamin B12 increased [Unknown]
  - Arthralgia [Unknown]
  - Vitamin D decreased [Unknown]
  - Fall [Unknown]
